APPROVED DRUG PRODUCT: ERYTHROCIN STEARATE
Active Ingredient: ERYTHROMYCIN STEARATE
Strength: EQ 125MG BASE
Dosage Form/Route: TABLET;ORAL
Application: A060359 | Product #002
Applicant: AZURITY PHARMACEUTICALS INC
Approved: Approved Prior to Jan 1, 1982 | RLD: No | RS: No | Type: DISCN